FAERS Safety Report 4627751-8 (Version None)
Quarter: 2005Q2

REPORT INFORMATION
  Report Type: 
  Country: None (occurrence: None)
  Receive Date: 20050406
  Receipt Date: 20050404
  Transmission Date: 20051028
  Serious: Yes (Death)
  Sender: FDA-Public Use
  Company Number: JP-BOEHRINGER INGELHEIM PHARMACEUTICALS, INC.-2005-BP-05446RO

PATIENT
  Sex: Male

DRUGS (5)
  1. LEUCOVORIN CALCIUM [Suspect]
     Indication: RECTAL CANCER
     Dosage: 75 MG DAILY
     Route: 048
     Dates: start: 20041214, end: 20050104
  2. LEUCOVORIN CALCIUM [Suspect]
     Route: 048
     Dates: start: 20041020
  3. UFT [Suspect]
     Indication: COLON CANCER
     Dosage: 2.5 MG DAILY
     Route: 048
     Dates: start: 20041214, end: 20050104
  4. UFT [Suspect]
     Dosage: 4 CAPSULES DAILY
     Route: 048
     Dates: start: 20041020
  5. NAUZELIN [Concomitant]
     Dates: start: 20041214, end: 20050104

REACTIONS (8)
  - ALANINE AMINOTRANSFERASE INCREASED [None]
  - ASPARTATE AMINOTRANSFERASE INCREASED [None]
  - BLOOD BILIRUBIN INCREASED [None]
  - BLOOD LACTATE DEHYDROGENASE INCREASED [None]
  - GAMMA-GLUTAMYLTRANSFERASE INCREASED [None]
  - HEPATIC FUNCTION ABNORMAL [None]
  - MALIGNANT NEOPLASM PROGRESSION [None]
  - RECTAL CANCER [None]
